FAERS Safety Report 7772016-9 (Version None)
Quarter: 2011Q3

REPORT INFORMATION
  Report Type: 
  Country: None (occurrence: None)
  Receive Date: 20110922
  Receipt Date: 20110324
  Transmission Date: 20111222
  Serious: No
  Sender: FDA-Public Use
  Company Number: US-ASTRAZENECA-2011SE16988

PATIENT
  Age: 33 Year
  Sex: Male

DRUGS (5)
  1. SEROQUEL [Suspect]
     Route: 048
     Dates: start: 20110321
  2. SEROQUEL [Suspect]
     Indication: DEPRESSION
     Route: 048
     Dates: start: 20100401, end: 20101001
  3. SEROQUEL [Suspect]
     Route: 048
     Dates: start: 20110321
  4. CELEXA [Concomitant]
  5. SEROQUEL [Suspect]
     Route: 048
     Dates: start: 20100401, end: 20101001

REACTIONS (4)
  - DELUSION [None]
  - SOLILOQUY [None]
  - SOMNOLENCE [None]
  - ROAD TRAFFIC ACCIDENT [None]
